FAERS Safety Report 23169620 (Version 1)
Quarter: 2023Q4

REPORT INFORMATION
  Report Type: Spontaneous
  Country: US (occurrence: US)
  Receive Date: 20231110
  Receipt Date: 20231110
  Transmission Date: 20240110
  Serious: No
  Sender: FDA-Public Use
  Company Number: US-TEVA-2023-US-2940082

PATIENT
  Sex: Female

DRUGS (1)
  1. DEXTROAMPHET SACCHARAT, AMPHET ASPARTATE, DEXTROAMPHET SULFATE AND AMP [Suspect]
     Active Substance: AMPHETAMINE ASPARTATE\AMPHETAMINE ASPARTATE MONOHYDRATE\AMPHETAMINE SULFATE\DEXTROAMPHETAMINE SACCHA
     Indication: Attention deficit hyperactivity disorder
     Route: 065

REACTIONS (8)
  - Sitting disability [Unknown]
  - Disturbance in attention [Unknown]
  - Wrist fracture [Unknown]
  - Grip strength decreased [Unknown]
  - Product dose omission issue [Unknown]
  - Drug ineffective [Unknown]
  - Adverse event [Unknown]
  - Product supply issue [Unknown]
